FAERS Safety Report 23519128 (Version 2)
Quarter: 2024Q4

REPORT INFORMATION
  Report Type: Spontaneous
  Country: US (occurrence: US)
  Receive Date: 20240213
  Receipt Date: 20241211
  Transmission Date: 20250115
  Serious: No
  Sender: MYLAN
  Company Number: USA24-001910

PATIENT
  Sex: Female

DRUGS (2)
  1. ESTRADIOL TRANSDERMAL SYSTEM [Suspect]
     Active Substance: ESTRADIOL
     Indication: Hormone level abnormal
     Dosage: 0.05 MILLIGRAM, QD (PER DAY)
     Route: 062
  2. ESTRADIOL TRANSDERMAL SYSTEM [Suspect]
     Active Substance: ESTRADIOL
     Dosage: 0.05 MILLIGRAM, QD (PER DAY)
     Route: 062

REACTIONS (2)
  - Hormone level abnormal [Unknown]
  - Product adhesion issue [Unknown]
